FAERS Safety Report 5284633-9 (Version None)
Quarter: 2007Q2

REPORT INFORMATION
  Report Type: 
  Country: None (occurrence: None)
  Receive Date: 20070403
  Receipt Date: 20070326
  Transmission Date: 20071010
  Serious: Yes (Life-Threatening)
  Sender: FDA-Public Use
  Company Number: IT-ELI_LILLY_AND_COMPANY-IT200703006476

PATIENT
  Age: 54 Year
  Sex: Female

DRUGS (9)
  1. XIGRIS [Suspect]
     Indication: SEPTIC SHOCK
     Dosage: 40 MG, OTHER
     Route: 042
     Dates: start: 20070316, end: 20070317
  2. NORADRENALINE [Concomitant]
     Dates: start: 20070315, end: 20070326
  3. DOBUTAMINE [Concomitant]
     Dates: start: 20070315, end: 20070326
  4. FUROSEMIDE [Concomitant]
     Dates: start: 20070315, end: 20070326
  5. NEXIUM [Concomitant]
     Route: 042
     Dates: start: 20070315, end: 20070326
  6. LINEZOLID [Concomitant]
     Route: 042
     Dates: start: 20070315, end: 20070326
  7. DEFLAMON [Concomitant]
     Route: 042
     Dates: start: 20070315, end: 20070326
  8. DALACIN C PHOSPHAT [Concomitant]
     Route: 042
     Dates: start: 20070315, end: 20070325
  9. URBASON                                 /GFR/ [Concomitant]
     Route: 042
     Dates: start: 20070315, end: 20070326

REACTIONS (2)
  - GASTROINTESTINAL HAEMORRHAGE [None]
  - THROMBOCYTOPENIA [None]
